FAERS Safety Report 24150102 (Version 2)
Quarter: 2024Q3

REPORT INFORMATION
  Report Type: Spontaneous
  Country: US (occurrence: US)
  Receive Date: 20240730
  Receipt Date: 20240802
  Transmission Date: 20241017
  Serious: No
  Sender: AMGEN
  Company Number: US-AMGEN-USASP2024149862

PATIENT
  Sex: Male

DRUGS (7)
  1. RAVICTI [Suspect]
     Active Substance: GLYCEROL PHENYLBUTYRATE
     Indication: Urea cycle disorder
     Dosage: 5.5 MILLILITER, TID (25ML BOTTLE)
     Route: 048
  2. CITRULLINE 1000 [Concomitant]
     Dosage: UNK
     Route: 065
  3. FLUTICASONE PROPIONATE [Concomitant]
     Active Substance: FLUTICASONE PROPIONATE
     Dosage: UNK
     Route: 065
  4. CLARITIN [Concomitant]
     Active Substance: LORATADINE
     Dosage: UNK
     Route: 065
  5. LYSINE [Concomitant]
     Active Substance: LYSINE
     Dosage: UNK
     Route: 065
  6. ZONEGRAN [Concomitant]
     Active Substance: ZONISAMIDE
     Dosage: UNK
     Route: 065
  7. VITAMINS [Concomitant]
     Active Substance: VITAMINS
     Dosage: UNK
     Route: 065

REACTIONS (2)
  - Weight decreased [Unknown]
  - Decreased appetite [Unknown]
